FAERS Safety Report 15387139 (Version 1)
Quarter: 2018Q3

REPORT INFORMATION
  Report Type: Other
  Country: None (occurrence: PL)
  Receive Date: 20180914
  Receipt Date: 20180914
  Transmission Date: 20181010
  Serious: Yes (Hospitalization, Other)
  Sender: FDA-Public Use
  Company Number: PL-LABORATOIRE HRA PHARMA-2054949

PATIENT
  Age: 33 Year
  Sex: Female

DRUGS (1)
  1. LYSODREN [Suspect]
     Active Substance: MITOTANE
     Indication: ADRENOCORTICAL CARCINOMA

REACTIONS (4)
  - Endometrial hyperplasia [None]
  - Iron deficiency anaemia [None]
  - Off label use [None]
  - Menorrhagia [None]
